FAERS Safety Report 6330071-7 (Version None)
Quarter: 2009Q3

REPORT INFORMATION
  Report Type: 
  Country: None (occurrence: None)
  Receive Date: 20090827
  Receipt Date: 20070504
  Transmission Date: 20100115
  Serious: Yes (Other)
  Sender: FDA-Public Use
  Company Number: US-ASTRAZENECA-2006UW22973

PATIENT
  Age: 15452 Day
  Sex: Male
  Weight: 98.9 kg

DRUGS (40)
  1. SEROQUEL [Suspect]
     Indication: PARANOIA
     Route: 048
     Dates: start: 19970101
  2. SEROQUEL [Suspect]
     Indication: SLEEP DISORDER
     Route: 048
     Dates: start: 19970101
  3. SEROQUEL [Suspect]
     Dosage: 200 MG-600 MG
     Route: 048
     Dates: start: 20000519
  4. SEROQUEL [Suspect]
     Dosage: 200 MG-600 MG
     Route: 048
     Dates: start: 20000519
  5. SEROQUEL [Suspect]
     Dosage: 25-300 MG
     Route: 048
     Dates: start: 20020514
  6. SEROQUEL [Suspect]
     Dosage: 25-300 MG
     Route: 048
     Dates: start: 20020514
  7. SEROQUEL [Suspect]
     Dosage: 25-300 MG
     Route: 048
     Dates: start: 20021016
  8. SEROQUEL [Suspect]
     Dosage: 25-300 MG
     Route: 048
     Dates: start: 20021016
  9. SEROQUEL [Suspect]
     Dosage: 50 MG-250 MG
     Route: 048
     Dates: start: 20051012
  10. SEROQUEL [Suspect]
     Dosage: 50 MG-250 MG
     Route: 048
     Dates: start: 20051012
  11. SEROQUEL [Suspect]
     Dosage: 25-300 MG
     Route: 048
     Dates: start: 20060116
  12. SEROQUEL [Suspect]
     Dosage: 25-300 MG
     Route: 048
     Dates: start: 20060116
  13. SERZONE [Concomitant]
     Dosage: 500-600 MG
     Route: 048
     Dates: start: 20001016
  14. CELEXA [Concomitant]
     Route: 048
     Dates: start: 20001016
  15. KLONOPIN [Concomitant]
     Route: 048
     Dates: start: 20001016
  16. CARBATROL [Concomitant]
     Dosage: 300-1200 MG
     Route: 048
     Dates: start: 20001016
  17. REMERON [Concomitant]
     Dosage: 15 MG-45 MG
     Route: 048
     Dates: start: 20000828
  18. ZOLOFT [Concomitant]
     Route: 048
     Dates: start: 19990803
  19. LIPITOR [Concomitant]
     Route: 048
     Dates: start: 20000327
  20. GLYBURIDE [Concomitant]
     Route: 048
     Dates: start: 20000327
  21. VASOTEC [Concomitant]
     Route: 048
     Dates: start: 20000327
  22. COGENTIN [Concomitant]
     Route: 048
     Dates: start: 20010125
  23. SONATA [Concomitant]
     Route: 048
     Dates: start: 19981210
  24. PROZAC [Concomitant]
     Route: 048
     Dates: start: 20010209
  25. ZYPREXA [Concomitant]
     Indication: AGITATION
     Route: 048
     Dates: start: 20010209
  26. TRILEPTAL [Concomitant]
     Route: 048
     Dates: start: 20010402
  27. PROLIXIN D [Concomitant]
     Dosage: 37.5 MG, EVERY 2 WEEKS
     Route: 030
     Dates: start: 20011129
  28. PROLIXIN D [Concomitant]
     Dosage: 5 MG, 1 TABLET MORNING, 2 TABLETS AT NIGHT
     Route: 048
     Dates: start: 20011129
  29. EFFEXOR XR [Concomitant]
     Dosage: 37.5 TO 75 MG
     Route: 048
     Dates: start: 20011129
  30. LEXAPRO [Concomitant]
     Route: 048
     Dates: start: 20050630
  31. VALIUM [Concomitant]
     Route: 048
     Dates: start: 20010205
  32. AMARYL [Concomitant]
     Route: 048
     Dates: start: 20031009
  33. LANTUS [Concomitant]
     Dosage: 100 U/ML, 15-20 UNITS AT NIGHT
     Route: 048
     Dates: start: 20041019
  34. HUMULIN R [Concomitant]
     Dosage: 100 UNITS, EVERY 12 HOURS
     Route: 058
     Dates: start: 20041019
  35. TRAZODONE HCL [Concomitant]
     Route: 048
     Dates: start: 20041019
  36. ALTACE [Concomitant]
     Route: 048
     Dates: start: 20010121
  37. PRILOSEC [Concomitant]
     Route: 048
     Dates: start: 20010121
  38. ZOCOR [Concomitant]
     Route: 048
     Dates: start: 20010410
  39. PLAVIX [Concomitant]
     Route: 048
     Dates: start: 20060120
  40. WELLBUTRIN XL [Concomitant]
     Route: 048
     Dates: start: 20040305

REACTIONS (6)
  - BLOOD GLUCOSE INCREASED [None]
  - DIABETES MELLITUS [None]
  - DIABETES MELLITUS INADEQUATE CONTROL [None]
  - DIABETIC NEUROPATHY [None]
  - DIABETIC VASCULAR DISORDER [None]
  - NEUROPATHY PERIPHERAL [None]
